FAERS Safety Report 6741499-5 (Version None)
Quarter: 2010Q2

REPORT INFORMATION
  Report Type: 
  Country: None (occurrence: None)
  Receive Date: 20100526
  Receipt Date: 20070530
  Transmission Date: 20101027
  Serious: Yes (Other)
  Sender: FDA-Public Use
  Company Number: PHHY2007MX03556

PATIENT
  Sex: Female

DRUGS (2)
  1. DIOVAN HCT [Suspect]
     Indication: HYPERTENSION
     Dosage: 0.5 DF (160/25 MG) PER DAY
     Route: 048
     Dates: start: 20041101
  2. HOMEOPATHIC PREPARATIONS [Concomitant]

REACTIONS (2)
  - DEPRESSION [None]
  - INSOMNIA [None]
